FAERS Safety Report 7110268-9 (Version None)
Quarter: 2010Q4

REPORT INFORMATION
  Report Type: 
  Country: None (occurrence: None)
  Receive Date: 20101112
  Receipt Date: 20101027
  Transmission Date: 20110411
  Serious: Yes (Hospitalization)
  Sender: FDA-Public Use
  Company Number: 1-17240451

PATIENT
  Age: 71 Year
  Sex: Female
  Weight: 81.6475 kg

DRUGS (2)
  1. QUININE SULFATE [Suspect]
     Indication: MUSCLE SPASMS
     Dosage: ORAL
     Route: 048
     Dates: start: 20020501
  2. SYNTHROID [Concomitant]

REACTIONS (26)
  - ABDOMINAL DISCOMFORT [None]
  - ABDOMINAL PAIN [None]
  - ADVERSE EVENT [None]
  - ALANINE AMINOTRANSFERASE DECREASED [None]
  - ANAEMIA [None]
  - ANXIETY [None]
  - ASPARTATE AMINOTRANSFERASE DECREASED [None]
  - CHILLS [None]
  - DEHYDRATION [None]
  - EPISTAXIS [None]
  - FEAR [None]
  - GRIEF REACTION [None]
  - HAEMODIALYSIS [None]
  - HAEMOLYTIC URAEMIC SYNDROME [None]
  - HEADACHE [None]
  - MALAISE [None]
  - MYALGIA [None]
  - NAUSEA [None]
  - NERVOUSNESS [None]
  - PAIN [None]
  - PYREXIA [None]
  - RENAL FAILURE [None]
  - RETCHING [None]
  - SHOCK [None]
  - THROMBOTIC THROMBOCYTOPENIC PURPURA [None]
  - VOMITING [None]
